FAERS Safety Report 5187817-3 (Version None)
Quarter: 2006Q4

REPORT INFORMATION
  Report Type: 
  Country: None (occurrence: None)
  Receive Date: 20061221
  Receipt Date: 20061214
  Transmission Date: 20070319
  Serious: Yes (Hospitalization)
  Sender: FDA-Public Use
  Company Number: US-JNJFOC-20061006302

PATIENT
  Sex: Female

DRUGS (12)
  1. INFLIXIMAB [Suspect]
     Indication: RHEUMATOID ARTHRITIS
     Route: 042
  2. ACCUPRIL [Concomitant]
  3. ASPIRIN [Concomitant]
  4. CLARITIN [Concomitant]
  5. DILTIAZEM HCL [Concomitant]
  6. FOLIC ACID [Concomitant]
  7. FUROSEMIDE INTENSOL [Concomitant]
  8. METHOTREXATE SODIUM [Concomitant]
  9. MIACALCIN [Concomitant]
  10. PRILOSEC [Concomitant]
  11. ADVAIR DISKUS 100/50 [Concomitant]
     Dosage: 500/50
  12. DUONEB [Concomitant]

REACTIONS (2)
  - CARDIAC FAILURE CONGESTIVE [None]
  - SMALL INTESTINAL OBSTRUCTION [None]
